FAERS Safety Report 11434525 (Version 1)
Quarter: 2015Q3

REPORT INFORMATION
  Report Type: Spontaneous
  Country: US (occurrence: None)
  Receive Date: 20150828
  Receipt Date: 20150828
  Transmission Date: 20151125
  Serious: No
  Sender: FDA-Public Use
  Company Number: None

PATIENT
  Age: 63 Year
  Sex: Female
  Weight: 40.82 kg

DRUGS (10)
  1. ASPIRIN 81MG ADULT LOW DOSE [Suspect]
     Active Substance: ASPIRIN
  2. ORACEA [Concomitant]
     Active Substance: DOXYCYCLINE
  3. CALCIUM [Concomitant]
     Active Substance: CALCIUM
  4. ESTRACE [Concomitant]
     Active Substance: ESTRADIOL
  5. MULTIVITAMIN [Concomitant]
     Active Substance: VITAMINS
  6. SYNTHROID [Concomitant]
     Active Substance: LEVOTHYROXINE SODIUM
  7. BUPROPION. [Concomitant]
     Active Substance: BUPROPION
  8. SPIRONOLACTONE. [Concomitant]
     Active Substance: SPIRONOLACTONE
  9. ASPIRIN. [Concomitant]
     Active Substance: ASPIRIN
  10. VITAMIN D [Concomitant]
     Active Substance: CHOLECALCIFEROL

REACTIONS (2)
  - Product label issue [None]
  - Lip swelling [None]

NARRATIVE: CASE EVENT DATE: 20150809
